FAERS Safety Report 8905134 (Version 2)
Quarter: 2018Q3

REPORT INFORMATION
  Report Type: Spontaneous
  Country: US (occurrence: GB)
  Receive Date: 20121113
  Receipt Date: 20180824
  Transmission Date: 20181010
  Serious: Yes (Other)
  Sender: FDA-Public Use
  Company Number: GB-009507513-1211GBR004575

PATIENT
  Age: 18 Year
  Sex: Female
  Weight: 90.5 kg

DRUGS (1)
  1. IMPLANON [Suspect]
     Active Substance: ETONOGESTREL
     Dosage: UNK
     Route: 059
     Dates: start: 201103

REACTIONS (2)
  - Device failure [Unknown]
  - Pregnancy with implant contraceptive [Unknown]
